FAERS Safety Report 5050656-8 (Version None)
Quarter: 2006Q3

REPORT INFORMATION
  Report Type: 
  Country: None (occurrence: None)
  Receive Date: 20060710
  Receipt Date: 20060630
  Transmission Date: 20061208
  Serious: Yes (Hospitalization)
  Sender: FDA-Public Use
  Company Number: 2006-06-2180

PATIENT
  Age: 55 Year
  Sex: Male

DRUGS (2)
  1. INTRON A [Suspect]
     Indication: METASTATIC RENAL CELL CARCINOMA
     Dates: start: 20030701
  2. PROLEUKIN [Suspect]
     Indication: METASTATIC RENAL CELL CARCINOMA
     Dates: start: 20030701

REACTIONS (3)
  - CONDITION AGGRAVATED [None]
  - DIPLOPIA [None]
  - MYASTHENIA GRAVIS [None]
